FAERS Safety Report 13575322 (Version 1)
Quarter: 2017Q2

REPORT INFORMATION
  Report Type: Spontaneous
  Country: CA (occurrence: CA)
  Receive Date: 20170524
  Receipt Date: 20170524
  Transmission Date: 20170830
  Serious: Yes (Other)
  Sender: FDA-Public Use
  Company Number: CA-SUN PHARMACEUTICAL INDUSTRIES LTD-2017US-141163

PATIENT
  Age: 22 Year
  Sex: Female

DRUGS (5)
  1. AZITHROMYCIN ANHYDROUS. [Suspect]
     Active Substance: AZITHROMYCIN ANHYDROUS
     Indication: CHLAMYDIAL INFECTION
     Dosage: SINGLE COURSE
     Route: 065
  2. AZITHROMYCIN ANHYDROUS. [Suspect]
     Active Substance: AZITHROMYCIN ANHYDROUS
     Indication: PNEUMONIA
     Dosage: UNK
  3. CIPROFLOXACIN. [Suspect]
     Active Substance: CIPROFLOXACIN
     Indication: GASTROENTERITIS BACTERIAL
     Route: 048
  4. MOXIFLOXACIN. [Suspect]
     Active Substance: MOXIFLOXACIN
     Indication: PNEUMONIA
     Route: 065
  5. CEFIXIME. [Suspect]
     Active Substance: CEFIXIME
     Indication: CHLAMYDIAL INFECTION
     Dosage: SINGLE COURSE
     Route: 065

REACTIONS (2)
  - Dysbacteriosis [Recovered/Resolved]
  - Gastroenteritis staphylococcal [Recovered/Resolved]

NARRATIVE: CASE EVENT DATE: 2014
